FAERS Safety Report 7776570-2 (Version None)
Quarter: 2011Q3

REPORT INFORMATION
  Report Type: 
  Country: None (occurrence: None)
  Receive Date: 20110926
  Receipt Date: 20110915
  Transmission Date: 20111222
  Serious: Yes (Other)
  Sender: FDA-Public Use
  Company Number: US-JNJFOC-20110907705

PATIENT
  Sex: Male
  Weight: 79.38 kg

DRUGS (7)
  1. INVEGA [Suspect]
     Indication: AUTISM
     Route: 048
     Dates: start: 20110801
  2. INTUNIV [Concomitant]
     Indication: ABNORMAL BEHAVIOUR
     Route: 048
     Dates: start: 20101001
  3. MELATONIN [Concomitant]
     Indication: SLEEP DISORDER
     Route: 048
  4. GABAPENTIN [Concomitant]
     Indication: AGGRESSION
     Route: 048
     Dates: start: 20110101, end: 20110913
  5. INVEGA [Suspect]
     Route: 048
     Dates: start: 20110101, end: 20110801
  6. GABAPENTIN [Concomitant]
     Route: 048
     Dates: start: 20110914
  7. CLONIDINE [Concomitant]
     Indication: SLEEP DISORDER
     Route: 048

REACTIONS (5)
  - WEIGHT DECREASED [None]
  - BLOOD THYROID STIMULATING HORMONE DECREASED [None]
  - EXTRAPYRAMIDAL DISORDER [None]
  - OFF LABEL USE [None]
  - TARDIVE DYSKINESIA [None]
